FAERS Safety Report 10952321 (Version 1)
Quarter: 2015Q1

REPORT INFORMATION
  Report Type: Spontaneous
  Country: US (occurrence: None)
  Receive Date: 20150323
  Receipt Date: 20150323
  Transmission Date: 20150721
  Serious: No
  Sender: FDA-Public Use
  Company Number: VIT-2014-02681

PATIENT
  Age: 58 Year
  Sex: Male
  Weight: 75 kg

DRUGS (14)
  1. SYNTHROID [Concomitant]
     Active Substance: LEVOTHYROXINE SODIUM
  2. RENVELA [Concomitant]
     Active Substance: SEVELAMER CARBONATE
  3. ATIVAN [Concomitant]
     Active Substance: LORAZEPAM
  4. LIMAPROST [Concomitant]
     Active Substance: LIMAPROST
  5. MINOXIDIL. [Concomitant]
     Active Substance: MINOXIDIL
  6. VELPHORO [Suspect]
     Active Substance: FERRIC OXYHYDROXIDE
     Indication: HYPERPHOSPHATAEMIA
     Route: 048
     Dates: start: 201407, end: 20141029
  7. ERGOCALCIFEROL. [Concomitant]
     Active Substance: ERGOCALCIFEROL
  8. FOSRENOL (LANTHANUM CARBONATE) [Concomitant]
  9. GENTAMICIN. [Concomitant]
     Active Substance: GENTAMICIN
  10. CARVEDILOL. [Concomitant]
     Active Substance: CARVEDILOL
  11. NICODERM CQ (NICOTINE) [Concomitant]
  12. AMLODIPINE [Concomitant]
     Active Substance: AMLODIPINE BESYLATE
  13. CALCITRIOL. [Concomitant]
     Active Substance: CALCITRIOL
  14. FLUOXETINE [Concomitant]
     Active Substance: FLUOXETINE\FLUOXETINE HYDROCHLORIDE

REACTIONS (2)
  - Tooth discolouration [None]
  - Breath odour [None]

NARRATIVE: CASE EVENT DATE: 20141216
